FAERS Safety Report 24731194 (Version 1)
Quarter: 2024Q4

REPORT INFORMATION
  Report Type: Spontaneous
  Country: US (occurrence: None)
  Receive Date: 20241212
  Receipt Date: 20241212
  Transmission Date: 20250115
  Serious: Yes (Other)
  Sender: Public
  Company Number: None

PATIENT
  Age: 28 Year
  Sex: Female
  Weight: 75.15 kg

DRUGS (2)
  1. ISOTRETINOIN [Suspect]
     Active Substance: ISOTRETINOIN
     Indication: Acne
     Dates: end: 20241010
  2. ISOTRETINOIN [Concomitant]
     Active Substance: ISOTRETINOIN
     Dates: end: 20241010

REACTIONS (4)
  - Pregnancy [None]
  - Exposure during pregnancy [None]
  - Maternal drugs affecting foetus [None]
  - Foetal exposure during pregnancy [None]

NARRATIVE: CASE EVENT DATE: 20241211
